FAERS Safety Report 7958846-9 (Version None)
Quarter: 2011Q4

REPORT INFORMATION
  Report Type: 
  Country: None (occurrence: None)
  Receive Date: 20111206
  Receipt Date: 20111130
  Transmission Date: 20120403
  Serious: Yes (Death, Hospitalization, Disabling)
  Sender: FDA-Public Use
  Company Number: US-ELI_LILLY_AND_COMPANY-US201112000234

PATIENT
  Sex: Female

DRUGS (1)
  1. HUMATROPE [Suspect]
     Indication: CUSHING'S SYNDROME
     Dosage: UNK, UNKNOWN
     Dates: start: 20010101

REACTIONS (9)
  - HYPOPITUITARISM [None]
  - CUSHING'S SYNDROME [None]
  - CORONARY ARTERY EMBOLISM [None]
  - EMPHYSEMA [None]
  - OFF LABEL USE [None]
  - ENDOCRINE DISORDER [None]
  - PULMONARY EMBOLISM [None]
  - SPINAL COMPRESSION FRACTURE [None]
  - CARDIAC DISORDER [None]
